FAERS Safety Report 20247219 (Version 1)
Quarter: 2021Q4

REPORT INFORMATION
  Report Type: Spontaneous
  Country: US (occurrence: US)
  Receive Date: 20211229
  Receipt Date: 20211229
  Transmission Date: 20220303
  Serious: Yes (Other)
  Sender: FDA-Public Use
  Company Number: US-MYLANLABS-2021M1097001

PATIENT
  Age: 63 Year
  Sex: Female

DRUGS (10)
  1. ZOLEDRONIC ACID [Suspect]
     Active Substance: ZOLEDRONIC ACID
     Indication: Metastatic bone disease prophylaxis
     Dosage: UNK
     Route: 065
     Dates: start: 2019
  2. LETROZOLE [Suspect]
     Active Substance: LETROZOLE
     Indication: Invasive lobular breast carcinoma
     Dosage: UNK
     Route: 065
     Dates: start: 2019
  3. LETROZOLE [Suspect]
     Active Substance: LETROZOLE
     Indication: Breast cancer stage IV
  4. LETROZOLE [Suspect]
     Active Substance: LETROZOLE
     Indication: Breast cancer female
  5. EVEROLIMUS [Suspect]
     Active Substance: EVEROLIMUS
     Indication: Invasive lobular breast carcinoma
     Dosage: 10 MILLIGRAM, QD
     Route: 065
     Dates: start: 20200828
  6. EVEROLIMUS [Suspect]
     Active Substance: EVEROLIMUS
     Indication: Breast cancer stage IV
  7. EVEROLIMUS [Suspect]
     Active Substance: EVEROLIMUS
     Indication: Breast cancer female
  8. PALBOCICLIB [Suspect]
     Active Substance: PALBOCICLIB
     Indication: Invasive lobular breast carcinoma
     Dosage: UNK
     Route: 065
     Dates: start: 2019
  9. FULVESTRANT [Concomitant]
     Active Substance: FULVESTRANT
     Indication: Invasive lobular breast carcinoma
     Dosage: UNK
     Route: 065
  10. EXEMESTANE [Concomitant]
     Active Substance: EXEMESTANE
     Indication: Invasive lobular breast carcinoma
     Dosage: UNK
     Route: 065

REACTIONS (2)
  - Leukopenia [Recovering/Resolving]
  - Neutropenia [Recovering/Resolving]

NARRATIVE: CASE EVENT DATE: 20190101
